FAERS Safety Report 19013281 (Version 1)
Quarter: 2021Q1

REPORT INFORMATION
  Report Type: Report from Study
  Country: US (occurrence: US)
  Receive Date: 20210315
  Receipt Date: 20210315
  Transmission Date: 20210420
  Serious: Yes (Death)
  Sender: FDA-Public Use
  Company Number: US-PFIZER INC-2021259760

PATIENT
  Age: 63 Year
  Sex: Male
  Weight: 88.43 kg

DRUGS (6)
  1. INLYTA [Suspect]
     Active Substance: AXITINIB
     Dosage: UNK
  2. ADVIL [Concomitant]
     Active Substance: IBUPROFEN
     Dosage: UNK
  3. VITAMIN D3 [Concomitant]
     Active Substance: CHOLECALCIFEROL
     Dosage: UNK
  4. AQUAPHOR [Concomitant]
     Active Substance: PETROLATUM
     Dosage: UNK
  5. TYLENOL [Concomitant]
     Active Substance: ACETAMINOPHEN
     Dosage: UNK
  6. DUPIXENT [Concomitant]
     Active Substance: DUPILUMAB
     Dosage: UNK

REACTIONS (1)
  - Death [Fatal]

NARRATIVE: CASE EVENT DATE: 20210117
